FAERS Safety Report 21774896 (Version 1)
Quarter: 2022Q4

REPORT INFORMATION
  Report Type: Other
  Country: CN (occurrence: None)
  Receive Date: 20221224
  Receipt Date: 20221224
  Transmission Date: 20230112
  Serious: Yes (Death)
  Sender: FDA-Public Use
  Company Number: CN-ROCHE-3246074

PATIENT
  Age: 49 Year
  Sex: Male

DRUGS (23)
  1. TRASTUZUMAB [Suspect]
     Active Substance: TRASTUZUMAB
     Indication: Gastric cancer
     Dosage: THE FIRST CYCLE OF TRASTUZUMAB 8 MG/KG INTRAVENOUS DRIP, D0; FOLLOWED BY 6 MG/KG INTRAVENOUS DRIP
     Route: 041
     Dates: start: 20121228, end: 20130423
  2. TRASTUZUMAB [Suspect]
     Active Substance: TRASTUZUMAB
     Indication: Gastric cancer
     Route: 041
     Dates: start: 201205, end: 201402
  3. TRASTUZUMAB [Suspect]
     Active Substance: TRASTUZUMAB
     Route: 041
     Dates: start: 20140304
  4. TRASTUZUMAB [Suspect]
     Active Substance: TRASTUZUMAB
     Route: 041
     Dates: start: 20140614, end: 20140911
  5. TRASTUZUMAB [Suspect]
     Active Substance: TRASTUZUMAB
     Route: 041
     Dates: start: 201409, end: 201506
  6. TRASTUZUMAB [Suspect]
     Active Substance: TRASTUZUMAB
     Dosage: THE FIRST CYCLE OF TRASTUZUMAB 8 MG/KG INTRAVENOUS DRIP, D0; FOLLOWED BY 6 MG/KG INTRAVENOUS DRIP
     Route: 041
     Dates: start: 20160804, end: 20161017
  7. CAPECITABINE [Suspect]
     Active Substance: CAPECITABINE
     Indication: Adenocarcinoma
     Dosage: FOR DAY1-14
     Route: 048
     Dates: start: 20121228, end: 20130423
  8. CISPLATIN [Suspect]
     Active Substance: CISPLATIN
     Indication: Gastric cancer
     Dosage: FOR DAY1
     Route: 041
     Dates: start: 20121228, end: 20130423
  9. PACLITAXEL [Suspect]
     Active Substance: PACLITAXEL
     Indication: Gastric cancer
     Route: 041
  10. LEUCOVORIN CALCIUM [Suspect]
     Active Substance: LEUCOVORIN CALCIUM
     Indication: Gastric cancer
     Route: 041
  11. TEGAFUR [Suspect]
     Active Substance: TEGAFUR
     Indication: Gastric cancer
     Route: 048
     Dates: start: 201409, end: 201506
  12. GIMERACIL [Suspect]
     Active Substance: GIMERACIL
     Indication: Gastric cancer
     Route: 048
     Dates: start: 201409, end: 201506
  13. OTERACIL POTASSIUM [Suspect]
     Active Substance: OTERACIL POTASSIUM
     Indication: Gastric cancer
     Route: 048
     Dates: start: 201409, end: 201506
  14. FLUOROURACIL [Suspect]
     Active Substance: FLUOROURACIL
     Indication: Gastric cancer
     Route: 041
  15. APATINIB [Suspect]
     Active Substance: APATINIB
     Indication: Gastric cancer
     Route: 048
     Dates: start: 20150818, end: 20151205
  16. APATINIB [Suspect]
     Active Substance: APATINIB
     Route: 048
  17. OXALIPLATIN [Suspect]
     Active Substance: OXALIPLATIN
     Indication: Gastric cancer
     Route: 041
     Dates: start: 20151214, end: 20160601
  18. RALTITREXED [Suspect]
     Active Substance: RALTITREXED
     Indication: Gastric cancer
     Route: 041
  19. LAPATINIB [Suspect]
     Active Substance: LAPATINIB
     Indication: Gastric cancer
     Route: 048
     Dates: start: 20151214, end: 20160601
  20. IRINOTECAN [Suspect]
     Active Substance: IRINOTECAN
     Indication: Gastric cancer
     Route: 041
  21. ETOPOSIDE [Suspect]
     Active Substance: ETOPOSIDE
     Indication: Gastric cancer
     Dosage: D1 TO D5, D8 TO D12, D15 TO D19
     Route: 048
  22. PACLITAXEL [Suspect]
     Active Substance: PACLITAXEL
     Indication: Gastric cancer
     Dosage: D1, D8, 21 DAYS AS ONE CYCLE
     Route: 041
     Dates: start: 20160804, end: 20161017
  23. ENDOSTATIN [Suspect]
     Active Substance: ENDOSTATIN
     Indication: Gastric cancer
     Route: 041

REACTIONS (1)
  - Disease progression [Fatal]
